FAERS Safety Report 15308382 (Version 1)
Quarter: 2018Q3

REPORT INFORMATION
  Report Type: Other
  Country: PL (occurrence: PL)
  Receive Date: 20180822
  Receipt Date: 20180822
  Transmission Date: 20181010
  Serious: Yes (Hospitalization, Other)
  Sender: FDA-Public Use
  Company Number: PL-MERCK KGAA-2054091

PATIENT
  Sex: Female
  Weight: 1.55 kg

DRUGS (6)
  1. PRAVASTATIN. [Suspect]
     Active Substance: PRAVASTATIN
  2. METFORMIN [Suspect]
     Active Substance: METFORMIN HYDROCHLORIDE
  3. ENOXAPARIN [Suspect]
     Active Substance: ENOXAPARIN
  4. METHYLDOPA. [Suspect]
     Active Substance: METHYLDOPA
  5. NOVOTHYROX [Suspect]
     Active Substance: LEVOTHYROXINE SODIUM
     Indication: PRODUCT USED FOR UNKNOWN INDICATION
  6. ACETYLSALICYLIC ACID [Suspect]
     Active Substance: ASPIRIN

REACTIONS (7)
  - Respiratory failure [Unknown]
  - Foetal exposure during pregnancy [Recovered/Resolved]
  - Foetal growth restriction [Recovering/Resolving]
  - Premature baby [Recovered/Resolved]
  - Low birth weight baby [Recovering/Resolving]
  - Anaemia [Unknown]
  - Blood thyroid stimulating hormone increased [None]
